FAERS Safety Report 17720003 (Version 3)
Quarter: 2020Q2

REPORT INFORMATION
  Report Type: Spontaneous
  Country: CA (occurrence: CA)
  Receive Date: 20200428
  Receipt Date: 20200518
  Transmission Date: 20200714
  Serious: Yes (Other)
  Sender: FDA-Public Use
  Company Number: CA-PFIZER INC-2020158556

PATIENT
  Age: 70 Year
  Sex: Male

DRUGS (12)
  1. ENTYVIO [Concomitant]
     Active Substance: VEDOLIZUMAB
     Dosage: 300 MG, Q4WEEKS
     Route: 042
     Dates: start: 201908, end: 20200414
  2. ENTOCORT ENEMA [Concomitant]
     Dosage: UNK, AS NEEDED (NIGHTLY)
  3. ROSUVASTATIN. [Concomitant]
     Active Substance: ROSUVASTATIN
     Dosage: UNK
  4. FOLIC ACID. [Concomitant]
     Active Substance: FOLIC ACID
     Indication: COLITIS ULCERATIVE
     Dosage: 5 MG, WEEKLY (SEPARATE DAY THAN METHOTREXATE)
     Dates: start: 20200219
  5. ENTYVIO [Concomitant]
     Active Substance: VEDOLIZUMAB
     Indication: COLITIS ULCERATIVE
     Dosage: 300 MG, Q4WEEKS
     Route: 042
     Dates: start: 201708, end: 201908
  6. RANITIDINE. [Concomitant]
     Active Substance: RANITIDINE
     Dosage: UNK
  7. ANUSOL-HC [HYDROCORTISONE ACETATE] [Concomitant]
     Dosage: UNK, AS NEEDED
     Route: 061
     Dates: start: 20200106
  8. METHOTREXATE SODIUM. [Suspect]
     Active Substance: METHOTREXATE SODIUM
     Indication: COLITIS ULCERATIVE
     Dosage: 20 MG, WEEKLY
     Route: 048
     Dates: start: 20200219
  9. ASPIRIN 81 [Concomitant]
     Active Substance: ASPIRIN
     Dosage: 81 MG
  10. HCTZ [Concomitant]
     Active Substance: HYDROCHLOROTHIAZIDE
     Dosage: UNK
  11. 5-ASA [Concomitant]
     Active Substance: MESALAMINE
     Dosage: UNK, AS NEEDED
  12. 5-ASA [Concomitant]
     Active Substance: MESALAMINE
     Dosage: UNK, AS NEEDED

REACTIONS (2)
  - Rectal tenesmus [Unknown]
  - Condition aggravated [Unknown]
